FAERS Safety Report 5907848-2 (Version None)
Quarter: 2008Q4

REPORT INFORMATION
  Report Type: 
  Country: None (occurrence: None)
  Receive Date: 20081003
  Receipt Date: 20080922
  Transmission Date: 20090506
  Serious: Yes (Hospitalization, Other)
  Sender: FDA-Public Use
  Company Number: US-PFIZER INC-2007108328

PATIENT
  Sex: Female

DRUGS (3)
  1. CHANTIX [Suspect]
     Indication: SMOKING CESSATION THERAPY
     Route: 048
     Dates: start: 20071222
  2. TRAMADOL HCL [Interacting]
     Indication: BACK PAIN
     Dates: start: 20070101, end: 20071224
  3. SONATA [Concomitant]

REACTIONS (6)
  - ABNORMAL DREAMS [None]
  - CHRONIC OBSTRUCTIVE PULMONARY DISEASE [None]
  - DRUG INTERACTION [None]
  - NAUSEA [None]
  - PAIN [None]
  - SURGERY [None]
